FAERS Safety Report 7332813-0 (Version None)
Quarter: 2011Q1

REPORT INFORMATION
  Report Type: 
  Country: None (occurrence: None)
  Receive Date: 20110304
  Receipt Date: 20110217
  Transmission Date: 20110831
  Serious: Yes (Other)
  Sender: FDA-Public Use
  Company Number: PHHY2011IT13592

PATIENT

DRUGS (1)
  1. EVEROLIMUS [Suspect]
     Indication: METASTATIC RENAL CELL CARCINOMA

REACTIONS (7)
  - GAMMA-GLUTAMYLTRANSFERASE INCREASED [None]
  - CHOLESTASIS [None]
  - CHOLELITHIASIS [None]
  - GALLBLADDER ENLARGEMENT [None]
  - BLOOD ALKALINE PHOSPHATASE INCREASED [None]
  - BILIARY DILATATION [None]
  - HYPERCHOLESTEROLAEMIA [None]
